FAERS Safety Report 9128315 (Version 4)
Quarter: 2013Q2

REPORT INFORMATION
  Report Type: Report from Study
  Country: US (occurrence: US)
  Receive Date: 20130228
  Receipt Date: 20130626
  Transmission Date: 20140414
  Serious: Yes (Other)
  Sender: FDA-Public Use
  Company Number: US-TEVA-388312USA

PATIENT
  Age: 22 Year
  Sex: Female

DRUGS (1)
  1. CLARAVIS [Suspect]
     Dosage: 60 MILLIGRAM DAILY;
     Dates: start: 20121022, end: 20130222

REACTIONS (1)
  - Unintended pregnancy [Recovered/Resolved]
